FAERS Safety Report 7893212-6 (Version None)
Quarter: 2011Q4

REPORT INFORMATION
  Report Type: 
  Country: None (occurrence: None)
  Receive Date: 20111104
  Receipt Date: 20111028
  Transmission Date: 20120403
  Serious: Yes (Death, Other)
  Sender: FDA-Public Use
  Company Number: PHHY2010JP02314

PATIENT
  Sex: Female

DRUGS (11)
  1. METHYLPREDNISOLONE [Concomitant]
     Indication: APLASTIC ANAEMIA
     Dosage: 1 G/DAY
     Dates: start: 20070601
  2. PROMAC [Concomitant]
     Indication: DYSGEUSIA
     Dosage: 150 MG, UNK
     Route: 048
     Dates: start: 20070613, end: 20090623
  3. PRIMOBOLAN-DEPOT INJ [Concomitant]
     Indication: APLASTIC ANAEMIA
     Dosage: 10 MG, UNK
     Route: 048
     Dates: start: 20070613, end: 20090623
  4. STEROIDS NOS [Concomitant]
     Dosage: UNK UKN, UNK
  5. ANTI-THYMOCYTE GLOBULIN NOS [Concomitant]
     Indication: APLASTIC ANAEMIA
     Dosage: UNK UKN, UNK
     Dates: start: 20070601
  6. LOXONIN [Concomitant]
     Indication: BACK PAIN
     Dosage: 120 MG, UNK
     Route: 048
     Dates: start: 20070613, end: 20090623
  7. DIAZEPAM [Concomitant]
     Indication: ANXIETY DISORDER
     Dosage: 2 MG, UNK
     Route: 048
     Dates: start: 20070613, end: 20090623
  8. OMEPRAZOLE [Concomitant]
     Indication: PROPHYLAXIS
     Dosage: 20 MG, UNK
     Route: 048
     Dates: start: 20070613, end: 20090623
  9. NEORAL [Suspect]
     Indication: APLASTIC ANAEMIA
     Dosage: 250 MG DAILY
     Route: 048
     Dates: start: 20070601
  10. NEORAL [Suspect]
     Dosage: 50 MG/DAY
     Route: 048
     Dates: start: 20070613, end: 20090623
  11. FOSAMAX [Concomitant]
     Indication: OSTEOPOROSIS
     Dosage: 5 MG, UNK
     Route: 048
     Dates: start: 20070613, end: 20090623

REACTIONS (30)
  - PNEUMONIA CYTOMEGALOVIRAL [None]
  - ENTEROBACTER INFECTION [None]
  - ESCHERICHIA TEST POSITIVE [None]
  - DISSEMINATED INTRAVASCULAR COAGULATION [None]
  - PULMONARY TUBERCULOSIS [None]
  - PYREXIA [None]
  - DYSPNOEA [None]
  - LUNG INFILTRATION [None]
  - SHOCK [None]
  - OPPORTUNISTIC INFECTION [None]
  - BONE MARROW FAILURE [None]
  - CELL MARKER INCREASED [None]
  - NECROSIS [None]
  - RALES [None]
  - SURFACTANT PROTEIN INCREASED [None]
  - PNEUMONIA PRIMARY ATYPICAL [None]
  - RESPIRATORY FAILURE [None]
  - CONJUNCTIVAL PALLOR [None]
  - FUNGAL INFECTION [None]
  - CELL-MEDIATED IMMUNE DEFICIENCY [None]
  - URINARY TRACT INFECTION [None]
  - BACTERIURIA [None]
  - DISSEMINATED TUBERCULOSIS [None]
  - PNEUMONIA [None]
  - ACUTE RESPIRATORY DISTRESS SYNDROME [None]
  - MYCOBACTERIAL INFECTION [None]
  - GRANULOMA [None]
  - PNEUMOTHORAX [None]
  - RENAL DISORDER [None]
  - STAPHYLOCOCCAL INFECTION [None]
